FAERS Safety Report 23693443 (Version 1)
Quarter: 2024Q2

REPORT INFORMATION
  Report Type: Spontaneous
  Country: US (occurrence: US)
  Receive Date: 20240401
  Receipt Date: 20240401
  Transmission Date: 20240716
  Serious: No
  Sender: FDA-Public Use
  Company Number: US-SANDOZ-SDZ2024US034665

PATIENT
  Sex: Male

DRUGS (3)
  1. CETIRIZINE [Suspect]
     Active Substance: CETIRIZINE HYDROCHLORIDE
     Indication: Urticaria cholinergic
     Dosage: UNK
     Route: 065
  2. FAMOTIDINE [Suspect]
     Active Substance: FAMOTIDINE
     Indication: Urticaria cholinergic
     Dosage: UNK
     Route: 065
  3. XOLAIR [Suspect]
     Active Substance: OMALIZUMAB
     Indication: Product used for unknown indication
     Dosage: UNK
     Route: 065

REACTIONS (2)
  - Therapeutic product effect incomplete [Unknown]
  - Pain [Unknown]
